FAERS Safety Report 23862728 (Version 2)
Quarter: 2024Q2

REPORT INFORMATION
  Report Type: Spontaneous
  Country: RO (occurrence: RO)
  Receive Date: 20240516
  Receipt Date: 20240624
  Transmission Date: 20240716
  Serious: Yes (Hospitalization, Other)
  Sender: FDA-Public Use
  Company Number: RO-PFIZER INC-PV202400062393

PATIENT
  Sex: Female

DRUGS (2)
  1. INFLIXIMAB [Suspect]
     Active Substance: INFLIXIMAB
     Indication: Colitis ulcerative
     Dosage: 10MG/KG (BODY WEIGHT)
  2. SOLU-MEDROL [Suspect]
     Active Substance: METHYLPREDNISOLONE SODIUM SUCCINATE
     Dosage: 60 MG, DAILY (FOR 3 DAYS)
     Route: 042

REACTIONS (4)
  - Diarrhoea haemorrhagic [Unknown]
  - Hypoalbuminaemia [Unknown]
  - C-reactive protein increased [Unknown]
  - Anaemia [Unknown]
